FAERS Safety Report 9099527 (Version 2)
Quarter: 2013Q1

REPORT INFORMATION
  Report Type: Spontaneous
  Country: US (occurrence: US)
  Receive Date: 20130214
  Receipt Date: 20130319
  Transmission Date: 20140127
  Serious: No
  Sender: FDA-Public Use
  Company Number: US-ROXANE LABORATORIES, INC.-2013-RO-00247RO

PATIENT
  Sex: Male

DRUGS (1)
  1. BUTORPHANOL [Suspect]
     Route: 045

REACTIONS (1)
  - Drug ineffective [Unknown]
